FAERS Safety Report 24458197 (Version 1)
Quarter: 2024Q4

REPORT INFORMATION
  Report Type: 
  Country: AU (occurrence: AU)
  Receive Date: 20241018
  Receipt Date: 20241018
  Transmission Date: 20250115
  Serious: Yes (Other)
  Sender: CELLTRION
  Company Number: AU-CELLTRION INC.-2024AU025008

PATIENT

DRUGS (1)
  1. INFLIXIMAB [Suspect]
     Active Substance: INFLIXIMAB
     Indication: Product used for unknown indication

REACTIONS (8)
  - Ileostomy closure [Unknown]
  - Vulval abscess [Unknown]
  - Anal fistula [Unknown]
  - Fibrosis [Unknown]
  - Pouchitis [Unknown]
  - Procedural nausea [Unknown]
  - Procedural vomiting [Unknown]
  - Off label use [Unknown]
